FAERS Safety Report 20558941 (Version 1)
Quarter: 2022Q1

REPORT INFORMATION
  Report Type: Spontaneous
  Country: US (occurrence: None)
  Receive Date: 20220304
  Receipt Date: 20220304
  Transmission Date: 20220423
  Serious: No
  Sender: FDA-Public Use
  Company Number: None

PATIENT
  Age: 70 Year
  Sex: Male

DRUGS (1)
  1. OTEZLA [Suspect]
     Active Substance: APREMILAST
     Indication: Rheumatoid arthritis
     Dosage: 30MG TWICE DAILY ORAL?
     Route: 048
     Dates: start: 202202, end: 202203

REACTIONS (3)
  - Gastrooesophageal reflux disease [None]
  - Dysphonia [None]
  - Nausea [None]

NARRATIVE: CASE EVENT DATE: 20220201
